FAERS Safety Report 15989527 (Version 1)
Quarter: 2019Q1

REPORT INFORMATION
  Report Type: Spontaneous
  Country: US (occurrence: US)
  Receive Date: 20190221
  Receipt Date: 20190221
  Transmission Date: 20190418
  Serious: No
  Sender: FDA-Public Use
  Company Number: US-PFIZER INC-2019071416

PATIENT
  Sex: Female

DRUGS (1)
  1. DILANTIN [Suspect]
     Active Substance: PHENYTOIN
     Dosage: UNK

REACTIONS (2)
  - Dental caries [Unknown]
  - Tooth loss [Unknown]
